FAERS Safety Report 10721064 (Version 2)
Quarter: 2015Q1

REPORT INFORMATION
  Report Type: Spontaneous
  Country: JP (occurrence: JP)
  Receive Date: 20150119
  Receipt Date: 20150316
  Transmission Date: 20150721
  Serious: Yes (Other)
  Sender: FDA-Public Use
  Company Number: JP-BRISTOL-MYERS SQUIBB COMPANY-20723805

PATIENT
  Age: 50 Year
  Sex: Male

DRUGS (4)
  1. ERBITUX [Suspect]
     Active Substance: CETUXIMAB
     Indication: SQUAMOUS CELL CARCINOMA OF HEAD AND NECK
     Dosage: 400 MG/M2, QWK
     Route: 041
     Dates: start: 20140115
  2. CARBOPLATIN. [Suspect]
     Active Substance: CARBOPLATIN
     Indication: SQUAMOUS CELL CARCINOMA OF HEAD AND NECK
     Dosage: 1DF:2.5 AUC.INF
     Route: 041
     Dates: start: 20140115, end: 20140521
  3. GRANISETRON [Suspect]
     Active Substance: GRANISETRON
     Indication: PRODUCT USED FOR UNKNOWN INDICATION
     Route: 065
  4. PACLITAXEL. [Suspect]
     Active Substance: PACLITAXEL
     Indication: SQUAMOUS CELL CARCINOMA OF HEAD AND NECK
     Dosage: INF
     Route: 041
     Dates: start: 20140115, end: 20140521

REACTIONS (15)
  - Hypoalbuminaemia [Unknown]
  - Dry mouth [Unknown]
  - Haemoglobin decreased [Unknown]
  - Pneumothorax [Unknown]
  - Dysgeusia [Unknown]
  - Neutrophil count decreased [Unknown]
  - Pneumonia [Unknown]
  - Hyperkalaemia [Unknown]
  - Alopecia [Unknown]
  - White blood cell count decreased [Unknown]
  - Skin reaction [Unknown]
  - Mucosal inflammation [Unknown]
  - Constipation [Unknown]
  - Dermatitis acneiform [Unknown]
  - Hypertrichosis [Unknown]

NARRATIVE: CASE EVENT DATE: 20140115
